FAERS Safety Report 7767084-4 (Version None)
Quarter: 2011Q3

REPORT INFORMATION
  Report Type: 
  Country: None (occurrence: None)
  Receive Date: 20110922
  Receipt Date: 20101123
  Transmission Date: 20111222
  Serious: No
  Sender: FDA-Public Use
  Company Number: US-ASTRAZENECA-2010SE55888

PATIENT
  Age: 485 Month
  Sex: Male
  Weight: 147.4 kg

DRUGS (3)
  1. SEROQUEL XR [Suspect]
     Indication: BIPOLAR DISORDER
     Route: 048
  2. DEPAKOTE [Concomitant]
     Route: 048
  3. SEROQUEL XR [Suspect]
     Route: 048
     Dates: start: 20101101

REACTIONS (4)
  - FATIGUE [None]
  - DEREALISATION [None]
  - ANXIETY [None]
  - AGITATION [None]
